FAERS Safety Report 9915716 (Version 1)
Quarter: 2014Q1

REPORT INFORMATION
  Report Type: Spontaneous
  Country: US (occurrence: None)
  Receive Date: 20140219
  Receipt Date: 20140219
  Transmission Date: 20141002
  Serious: Yes (Disabling, Other)
  Sender: FDA-Public Use
  Company Number: None

PATIENT
  Age: 60 Year
  Sex: Female
  Weight: 65.77 kg

DRUGS (4)
  1. LEVOFLOXACIN (LEVAQUIN) [Suspect]
     Indication: ATYPICAL PNEUMONIA
     Route: 048
     Dates: start: 20131218, end: 20131224
  2. CALCIUM [Concomitant]
  3. VITAMIN D3 [Concomitant]
  4. VITAMIN B [Concomitant]

REACTIONS (8)
  - Meniscus injury [None]
  - Muscular weakness [None]
  - Sensory disturbance [None]
  - Joint swelling [None]
  - Local swelling [None]
  - Burning sensation [None]
  - Gait disturbance [None]
  - Pain [None]
